FAERS Safety Report 20340125 (Version 1)
Quarter: 2022Q1

REPORT INFORMATION
  Report Type: Spontaneous
  Country: US (occurrence: US)
  Receive Date: 20220117
  Receipt Date: 20220117
  Transmission Date: 20220423
  Serious: Yes (Other)
  Sender: FDA-Public Use
  Company Number: US-drreddys-LIT/USA/22/0145920

PATIENT
  Age: 14 Year
  Sex: Female

DRUGS (48)
  1. SIROLIMUS [Suspect]
     Active Substance: SIROLIMUS
     Indication: Anaphylactic transfusion reaction
     Dosage: ON DAY PLUS 5 AFTER TRANSPLANT.
  2. SIROLIMUS [Suspect]
     Active Substance: SIROLIMUS
     Indication: Cytomegalovirus infection reactivation
  3. SIROLIMUS [Suspect]
     Active Substance: SIROLIMUS
     Indication: Stem cell transplant
  4. SIROLIMUS [Suspect]
     Active Substance: SIROLIMUS
     Indication: Prophylaxis
  5. SIROLIMUS [Suspect]
     Active Substance: SIROLIMUS
     Indication: Delayed haemolytic transfusion reaction
  6. THIOTEPA [Suspect]
     Active Substance: THIOTEPA
     Indication: Anaphylactic transfusion reaction
     Dosage: DAY -7
  7. THIOTEPA [Suspect]
     Active Substance: THIOTEPA
     Indication: Cytomegalovirus infection reactivation
  8. THIOTEPA [Suspect]
     Active Substance: THIOTEPA
     Indication: Stem cell transplant
  9. THIOTEPA [Suspect]
     Active Substance: THIOTEPA
     Indication: Delayed haemolytic transfusion reaction
  10. HYDROXYUREA [Suspect]
     Active Substance: HYDROXYUREA
     Indication: Anaphylactic transfusion reaction
     Dosage: (DAY -70 TO -10)
  11. HYDROXYUREA [Suspect]
     Active Substance: HYDROXYUREA
     Indication: Cytomegalovirus infection reactivation
  12. HYDROXYUREA [Suspect]
     Active Substance: HYDROXYUREA
     Indication: Stem cell transplant
  13. HYDROXYUREA [Suspect]
     Active Substance: HYDROXYUREA
     Indication: Delayed haemolytic transfusion reaction
  14. THYMOGLOBULIN [Suspect]
     Active Substance: LAPINE T-LYMPHOCYTE IMMUNE GLOBULIN
     Indication: Anaphylactic transfusion reaction
     Dosage: DAYS -9 TO -7
  15. THYMOGLOBULIN [Suspect]
     Active Substance: LAPINE T-LYMPHOCYTE IMMUNE GLOBULIN
     Indication: Cytomegalovirus infection reactivation
  16. THYMOGLOBULIN [Suspect]
     Active Substance: LAPINE T-LYMPHOCYTE IMMUNE GLOBULIN
     Indication: Stem cell transplant
  17. THYMOGLOBULIN [Suspect]
     Active Substance: LAPINE T-LYMPHOCYTE IMMUNE GLOBULIN
     Indication: Delayed haemolytic transfusion reaction
  18. CYCLOPHOSPHAMIDE [Suspect]
     Active Substance: CYCLOPHOSPHAMIDE
     Indication: Anaphylactic transfusion reaction
     Dosage: DAYS -6 AND -5)
  19. CYCLOPHOSPHAMIDE [Suspect]
     Active Substance: CYCLOPHOSPHAMIDE
     Indication: Cytomegalovirus infection reactivation
     Dosage: POST-TRANSPLANT DAY PLUS 3 AND PLUS 4
  20. CYCLOPHOSPHAMIDE [Suspect]
     Active Substance: CYCLOPHOSPHAMIDE
     Indication: Stem cell transplant
  21. CYCLOPHOSPHAMIDE [Suspect]
     Active Substance: CYCLOPHOSPHAMIDE
     Indication: Delayed haemolytic transfusion reaction
  22. MYCOPHENOLATE MOFETIL [Suspect]
     Active Substance: MYCOPHENOLATE MOFETIL
     Indication: Anaphylactic transfusion reaction
     Dosage: ON DAY PLUS 5 AFTER TRANSPLANT.
  23. MYCOPHENOLATE MOFETIL [Suspect]
     Active Substance: MYCOPHENOLATE MOFETIL
     Indication: Cytomegalovirus infection reactivation
  24. MYCOPHENOLATE MOFETIL [Suspect]
     Active Substance: MYCOPHENOLATE MOFETIL
     Indication: Stem cell transplant
  25. MYCOPHENOLATE MOFETIL [Suspect]
     Active Substance: MYCOPHENOLATE MOFETIL
     Indication: Prophylaxis
  26. MYCOPHENOLATE MOFETIL [Suspect]
     Active Substance: MYCOPHENOLATE MOFETIL
     Indication: Delayed haemolytic transfusion reaction
  27. FLUDARABINE [Suspect]
     Active Substance: FLUDARABINE PHOSPHATE
     Indication: Anaphylactic transfusion reaction
     Dosage: DAYS -6 TO -2
  28. FLUDARABINE [Suspect]
     Active Substance: FLUDARABINE PHOSPHATE
     Indication: Cytomegalovirus infection reactivation
  29. FLUDARABINE [Suspect]
     Active Substance: FLUDARABINE PHOSPHATE
     Indication: Stem cell transplant
  30. FLUDARABINE [Suspect]
     Active Substance: FLUDARABINE PHOSPHATE
     Indication: Delayed haemolytic transfusion reaction
  31. ELTROMBOPAG [Suspect]
     Active Substance: ELTROMBOPAG
     Indication: Anaphylactic transfusion reaction
  32. ELTROMBOPAG [Suspect]
     Active Substance: ELTROMBOPAG
     Indication: Cytomegalovirus infection reactivation
  33. ELTROMBOPAG [Suspect]
     Active Substance: ELTROMBOPAG
     Indication: Stem cell transplant
  34. ELTROMBOPAG [Suspect]
     Active Substance: ELTROMBOPAG
     Indication: Delayed haemolytic transfusion reaction
  35. RITUXIMAB [Suspect]
     Active Substance: RITUXIMAB
     Indication: Anaphylactic transfusion reaction
  36. RITUXIMAB [Suspect]
     Active Substance: RITUXIMAB
     Indication: Cytomegalovirus infection reactivation
  37. RITUXIMAB [Suspect]
     Active Substance: RITUXIMAB
     Indication: Stem cell transplant
  38. RITUXIMAB [Suspect]
     Active Substance: RITUXIMAB
     Indication: Delayed haemolytic transfusion reaction
  39. IMMUNE GLOBULIN NOS [Suspect]
     Active Substance: IMMUNE GLOBULIN NOS
     Indication: Anaphylactic transfusion reaction
     Route: 042
  40. IMMUNE GLOBULIN NOS [Suspect]
     Active Substance: IMMUNE GLOBULIN NOS
     Indication: Cytomegalovirus infection reactivation
  41. IMMUNE GLOBULIN NOS [Suspect]
     Active Substance: IMMUNE GLOBULIN NOS
     Indication: Delayed haemolytic transfusion reaction
  42. IMMUNE GLOBULIN NOS [Suspect]
     Active Substance: IMMUNE GLOBULIN NOS
     Indication: Stem cell transplant
  43. ACYCLOVIR [Suspect]
     Active Substance: ACYCLOVIR
     Indication: Antiviral prophylaxis
  44. ACYCLOVIR [Suspect]
     Active Substance: ACYCLOVIR
     Indication: Anaphylactic transfusion reaction
  45. ACYCLOVIR [Suspect]
     Active Substance: ACYCLOVIR
     Indication: Cytomegalovirus infection reactivation
  46. ACYCLOVIR [Suspect]
     Active Substance: ACYCLOVIR
     Indication: Delayed haemolytic transfusion reaction
  47. ACYCLOVIR [Suspect]
     Active Substance: ACYCLOVIR
     Indication: Stem cell transplant
  48. METHOTREXATE [Suspect]
     Active Substance: METHOTREXATE
     Indication: Prophylaxis

REACTIONS (1)
  - Drug ineffective [Unknown]
